FAERS Safety Report 18142720 (Version 1)
Quarter: 2020Q3

REPORT INFORMATION
  Report Type: Report from Study
  Country: IT (occurrence: IT)
  Receive Date: 20200813
  Receipt Date: 20200813
  Transmission Date: 20201103
  Serious: Yes (Hospitalization)
  Sender: FDA-Public Use
  Company Number: IT-TEVA-2020-IT-1813180

PATIENT
  Age: 78 Year
  Sex: Female

DRUGS (3)
  1. CIPRALEX [Suspect]
     Active Substance: ESCITALOPRAM OXALATE
     Route: 065
  2. COVERLAM [Concomitant]
     Active Substance: AMLODIPINE BESYLATE\PERINDOPRIL ARGININE
  3. LORAZEPAM. [Suspect]
     Active Substance: LORAZEPAM
     Route: 065

REACTIONS (2)
  - Asthenia [Unknown]
  - Bradycardia [Unknown]

NARRATIVE: CASE EVENT DATE: 20200528
